FAERS Safety Report 17738902 (Version 1)
Quarter: 2020Q2

REPORT INFORMATION
  Report Type: Spontaneous
  Country: US (occurrence: US)
  Receive Date: 20200501
  Receipt Date: 20200501
  Transmission Date: 20200714
  Serious: No
  Sender: FDA-Public Use
  Company Number: None

PATIENT
  Age: 75 Year
  Sex: Male

DRUGS (1)
  1. DICLOFENAC (DICLOFENAC NA 75MG TAB,EC) [Suspect]
     Active Substance: DICLOFENAC SODIUM
     Indication: PAIN
     Dates: start: 20200103

REACTIONS (1)
  - Pain [None]

NARRATIVE: CASE EVENT DATE: 20200103
